FAERS Safety Report 22679423 (Version 2)
Quarter: 2023Q4

REPORT INFORMATION
  Report Type: Spontaneous
  Country: JP (occurrence: JP)
  Receive Date: 20230707
  Receipt Date: 20231128
  Transmission Date: 20240110
  Serious: Yes (Other)
  Sender: FDA-Public Use
  Company Number: JP-TAKEDA-2023TJP008792

PATIENT
  Age: 5 Decade
  Sex: Male

DRUGS (2)
  1. VECTIBIX [Suspect]
     Active Substance: PANITUMUMAB
     Indication: Colorectal cancer
     Dosage: UNK
     Route: 065
  2. VECTIBIX [Suspect]
     Active Substance: PANITUMUMAB
     Dosage: UNK UNK, Q2WEEKS
     Route: 041
     Dates: start: 202305

REACTIONS (4)
  - Metastases to lung [Unknown]
  - Metastasis [Unknown]
  - Drug ineffective [Unknown]
  - Dermatitis acneiform [Not Recovered/Not Resolved]
